FAERS Safety Report 18422801 (Version 2)
Quarter: 2020Q4

REPORT INFORMATION
  Report Type: Spontaneous
  Country: US (occurrence: US)
  Receive Date: 20201023
  Receipt Date: 20201119
  Transmission Date: 20210114
  Serious: Yes (Hospitalization)
  Sender: FDA-Public Use
  Company Number: US-LUNDBECK-DKLU3022804

PATIENT
  Age: 23 Year
  Sex: Female
  Weight: 117 kg

DRUGS (5)
  1. CLOBAZAM. [Interacting]
     Active Substance: CLOBAZAM
     Route: 065
  2. EPIDIOLEX [Interacting]
     Active Substance: CANNABIDIOL
     Indication: LENNOX-GASTAUT SYNDROME
     Dosage: 100 MG/ML SOLUTION
     Route: 065
  3. LACOSAMIDE. [Interacting]
     Active Substance: LACOSAMIDE
     Indication: PARTIAL SEIZURES
     Route: 065
  4. CLOBAZAM. [Suspect]
     Active Substance: CLOBAZAM
     Indication: PARTIAL SEIZURES
     Route: 065
  5. EPIDIOLEX [Interacting]
     Active Substance: CANNABIDIOL
     Route: 065

REACTIONS (2)
  - Drug interaction [Unknown]
  - Rash morbilliform [Recovered/Resolved]
